FAERS Safety Report 8920896 (Version 1)
Quarter: 2012Q4

REPORT INFORMATION
  Report Type: Report from Study
  Country: CA (occurrence: CA)
  Receive Date: 20121121
  Receipt Date: 20121121
  Transmission Date: 20130627
  Serious: Yes (Hospitalization)
  Sender: FDA-Public Use
  Company Number: CA-JNJFOC-20121102512

PATIENT
  Age: 53 Year
  Sex: Male
  Weight: 86.4 kg

DRUGS (4)
  1. REMICADE [Suspect]
     Indication: RHEUMATOID ARTHRITIS
     Route: 042
     Dates: start: 20080310
  2. METHOTREXATE [Concomitant]
     Route: 065
  3. HYDROXYCHLOROQUINE [Concomitant]
     Route: 065
  4. FOLIC ACID [Concomitant]
     Route: 065

REACTIONS (5)
  - Road traffic accident [Recovered/Resolved]
  - Clavicle fracture [Recovered/Resolved]
  - Rib fracture [Recovered/Resolved]
  - Traumatic lung injury [Recovered/Resolved]
  - Pneumothorax traumatic [Recovered/Resolved]
